FAERS Safety Report 23816926 (Version 1)
Quarter: 2024Q2

REPORT INFORMATION
  Report Type: Spontaneous
  Country: CN (occurrence: CN)
  Receive Date: 20240504
  Receipt Date: 20240504
  Transmission Date: 20240716
  Serious: Yes (Other)
  Sender: FDA-Public Use
  Company Number: CN-002147023-NVSC2024CN091477

PATIENT
  Age: 81 Year
  Sex: Female
  Weight: 60 kg

DRUGS (7)
  1. SACUBITRIL\VALSARTAN [Suspect]
     Active Substance: SACUBITRIL\VALSARTAN
     Indication: Cardiac failure
     Dosage: 50 MG, BID
     Route: 048
     Dates: start: 20240417, end: 20240418
  2. RABEPRAZOLE SODIUM [Concomitant]
     Active Substance: RABEPRAZOLE SODIUM
     Indication: Enzyme inhibition
     Dosage: 10 MG, QD (ENTERIC-COATED TABLETS)
     Route: 048
     Dates: start: 20240415, end: 20240419
  3. MOSAPRIDE [Concomitant]
     Active Substance: MOSAPRIDE
     Indication: Enzyme inhibition
     Dosage: 5 MG, TID
     Route: 048
     Dates: start: 20240415, end: 20240419
  4. ROSUVASTATIN CALCIUM [Concomitant]
     Active Substance: ROSUVASTATIN CALCIUM
     Indication: Administration site plaque
     Dosage: 10 MG, QD
     Route: 048
     Dates: start: 20240415, end: 20240422
  5. HYDROCHLOROTHIAZIDE\VALSARTAN [Concomitant]
     Active Substance: HYDROCHLOROTHIAZIDE\VALSARTAN
     Indication: Blood pressure measurement
     Dosage: 80 MG
     Route: 048
     Dates: start: 20240415, end: 20240417
  6. METOPROLOL [Concomitant]
     Active Substance: METOPROLOL
     Indication: Blood pressure measurement
     Dosage: 47.5 MG, QD (SUSTAINED-RELEASE TABLETS)
     Route: 048
     Dates: start: 20240417, end: 20240419
  7. METOPROLOL [Concomitant]
     Active Substance: METOPROLOL
     Indication: Cardiac disorder

REACTIONS (2)
  - Meningioma [Unknown]
  - Tremor [Recovered/Resolved]

NARRATIVE: CASE EVENT DATE: 20240418
